FAERS Safety Report 16217823 (Version 2)
Quarter: 2019Q2

REPORT INFORMATION
  Report Type: Report from Study
  Country: CA (occurrence: CA)
  Receive Date: 20190419
  Receipt Date: 20190521
  Transmission Date: 20190711
  Serious: Yes (Other)
  Sender: FDA-Public Use
  Company Number: CA-JNJFOC-20190421137

PATIENT
  Age: 64 Year
  Sex: Female
  Weight: 50 kg

DRUGS (1)
  1. REMICADE [Suspect]
     Active Substance: INFLIXIMAB
     Indication: CROHN^S DISEASE
     Dosage: STRENGTH = 100 MG
     Route: 042
     Dates: start: 20100719

REACTIONS (3)
  - Off label use [Unknown]
  - Product use issue [Unknown]
  - Hepatic cancer [Unknown]

NARRATIVE: CASE EVENT DATE: 20100719
